FAERS Safety Report 5959885-X (Version None)
Quarter: 2008Q4

REPORT INFORMATION
  Report Type: 
  Country: None (occurrence: None)
  Receive Date: 20081119
  Receipt Date: 20081119
  Transmission Date: 20090506
  Serious: Yes (Other)
  Sender: FDA-Public Use
  Company Number: None

PATIENT
  Sex: Female
  Weight: 61.2356 kg

DRUGS (2)
  1. EUCERIN HC [Suspect]
     Indication: DRY SKIN
     Dosage: APPROX. 2 TBSP. OF LOTION ONCE CUTANEOUS
     Route: 003
     Dates: start: 20081117, end: 20081117
  2. ORTHO TRI-CYCLEN LO [Concomitant]

REACTIONS (2)
  - DRUG HYPERSENSITIVITY [None]
  - FLUID RETENTION [None]
